FAERS Safety Report 6527046-1 (Version None)
Quarter: 2009Q4

REPORT INFORMATION
  Report Type: 
  Country: None (occurrence: None)
  Receive Date: 20091229
  Receipt Date: 20091123
  Transmission Date: 20100525
  Serious: Yes (Hospitalization)
  Sender: FDA-Public Use
  Company Number: 003199

PATIENT
  Sex: Female

DRUGS (1)
  1. CODEINE W/PARACETAMOL (CODEINE+PARACETAMOL) [Suspect]
     Indication: EPISIOTOMY
     Dosage: (120 MG), (60 MG)

REACTIONS (5)
  - CYANOSIS NEONATAL [None]
  - DRUG EXPOSURE VIA BREAST MILK [None]
  - DRUG LEVEL INCREASED [None]
  - FEEDING DISORDER NEONATAL [None]
  - LETHARGY [None]
